FAERS Safety Report 24530240 (Version 1)
Quarter: 2024Q4

REPORT INFORMATION
  Report Type: Spontaneous
  Country: CN (occurrence: CN)
  Receive Date: 20241021
  Receipt Date: 20241021
  Transmission Date: 20250114
  Serious: Yes (Hospitalization)
  Sender: NOVARTIS
  Company Number: CN-002147023-NVSC2024CN204181

PATIENT

DRUGS (1)
  1. CARBAMAZEPINE [Suspect]
     Active Substance: CARBAMAZEPINE
     Indication: Glossopharyngeal neuralgia
     Dosage: 0.2 G, QD
     Route: 048

REACTIONS (5)
  - Drug eruption [Unknown]
  - Stevens-Johnson syndrome [Unknown]
  - Dermatitis allergic [Unknown]
  - Erythema [Unknown]
  - Pruritus [Unknown]
